FAERS Safety Report 9656452 (Version 2)
Quarter: 2014Q1

REPORT INFORMATION
  Report Type: Spontaneous
  Country: CA (occurrence: CA)
  Receive Date: 20131030
  Receipt Date: 20140131
  Transmission Date: 20141002
  Serious: Yes (Other)
  Sender: FDA-Public Use
  Company Number: CA-ABBVIE-13P-028-1160885-00

PATIENT
  Sex: Female

DRUGS (4)
  1. HUMIRA [Suspect]
     Indication: PRODUCT USED FOR UNKNOWN INDICATION
     Route: 058
  2. ENBREL [Suspect]
     Indication: RHEUMATOID ARTHRITIS
  3. ENBREL [Suspect]
     Dates: start: 20130319
  4. ORENCIA [Suspect]
     Indication: PRODUCT USED FOR UNKNOWN INDICATION

REACTIONS (17)
  - Activities of daily living impaired [Unknown]
  - Arthropathy [Unknown]
  - Arthropathy [Unknown]
  - Pain [Unknown]
  - Quality of life decreased [Unknown]
  - Drug hypersensitivity [Unknown]
  - Fracture [Unknown]
  - Fungal infection [Unknown]
  - Headache [Not Recovered/Not Resolved]
  - Infection [Unknown]
  - Lung infection [Unknown]
  - Osteomyelitis [Unknown]
  - Therapeutic response decreased [Unknown]
  - Osteomyelitis [Not Recovered/Not Resolved]
  - Hypersensitivity [Unknown]
  - Infection [Unknown]
  - Drug ineffective [Recovered/Resolved with Sequelae]
